FAERS Safety Report 6626767-X (Version None)
Quarter: 2010Q1

REPORT INFORMATION
  Report Type: 
  Country: None (occurrence: None)
  Receive Date: 20100311
  Receipt Date: 20100303
  Transmission Date: 20100710
  Serious: Yes (Hospitalization)
  Sender: FDA-Public Use
  Company Number: US-BIOGENIDEC-2006BI006910

PATIENT
  Age: 35 Year
  Sex: Female

DRUGS (3)
  1. AVONEX [Suspect]
     Indication: MULTIPLE SCLEROSIS
     Route: 030
     Dates: start: 20040101
  2. AVONEX [Suspect]
     Route: 030
     Dates: start: 19970101, end: 20040101
  3. EFFEXOR [Concomitant]

REACTIONS (3)
  - ENDOMETRIOSIS [None]
  - IMPAIRED HEALING [None]
  - POST PROCEDURAL HAEMORRHAGE [None]
